FAERS Safety Report 5466208-1 (Version None)
Quarter: 2007Q3

REPORT INFORMATION
  Report Type: 
  Country: None (occurrence: None)
  Receive Date: 20070919
  Receipt Date: 20070910
  Transmission Date: 20080115
  Serious: Yes (Life-Threatening)
  Sender: FDA-Public Use
  Company Number: 2007P1000640

PATIENT
  Age: 21 Year
  Sex: Male

DRUGS (8)
  1. BUSULFAN (BUSULFAN) [Suspect]
     Indication: STEM CELL TRANSPLANT
     Dosage: 25.8 MG; QD; IV; 34.4 ML; QD; IV; 6 ML; QD; IV
     Route: 042
     Dates: start: 20070111, end: 20070111
  2. BUSULFAN (BUSULFAN) [Suspect]
     Indication: STEM CELL TRANSPLANT
     Dosage: 25.8 MG; QD; IV; 34.4 ML; QD; IV; 6 ML; QD; IV
     Route: 042
     Dates: start: 20070112, end: 20070114
  3. BUSULFAN (BUSULFAN) [Suspect]
     Indication: STEM CELL TRANSPLANT
     Dosage: 25.8 MG; QD; IV; 34.4 ML; QD; IV; 6 ML; QD; IV
     Route: 042
     Dates: start: 20070115, end: 20070115
  4. NEUPOGEN [Concomitant]
  5. VALPROATE SODIUM [Concomitant]
  6. CYCLOPHOSPHAMIDE [Concomitant]
  7. METHOTREXATE [Concomitant]
  8. CYCLOSPORINE [Concomitant]

REACTIONS (2)
  - LOWER GASTROINTESTINAL HAEMORRHAGE [None]
  - THROMBOCYTOPENIA [None]
